FAERS Safety Report 16843722 (Version 1)
Quarter: 2019Q3

REPORT INFORMATION
  Report Type: Spontaneous
  Country: US (occurrence: US)
  Receive Date: 20190924
  Receipt Date: 20190924
  Transmission Date: 20191005
  Serious: Yes (Other)
  Sender: FDA-Public Use
  Company Number: US-AKORN PHARMACEUTICALS-2019AKN01979

PATIENT
  Age: 36 Year
  Sex: Female
  Weight: 68.93 kg

DRUGS (12)
  1. VYVANSE [Concomitant]
     Active Substance: LISDEXAMFETAMINE DIMESYLATE
  2. LYRICA [Concomitant]
     Active Substance: PREGABALIN
  3. MULTIVITAMIN [Concomitant]
     Active Substance: VITAMINS
  4. MYORISAN [Suspect]
     Active Substance: ISOTRETINOIN
     Dosage: 20 MG, 1X/DAY IN THE MORNING
     Dates: start: 20190626, end: 20190801
  5. TOPIRAMATE. [Concomitant]
     Active Substance: TOPIRAMATE
  6. MYORISAN [Suspect]
     Active Substance: ISOTRETINOIN
     Indication: ACNE
     Dosage: 20 MG, 1X/DAY
     Dates: start: 20190604, end: 201906
  7. VITAMIN B12 [Concomitant]
     Active Substance: CYANOCOBALAMIN
  8. MYORISAN [Suspect]
     Active Substance: ISOTRETINOIN
     Dosage: 20 MG, 2X/DAY
     Dates: start: 201906, end: 20190625
  9. MYORISAN [Suspect]
     Active Substance: ISOTRETINOIN
     Dosage: 40 MG, 1X/DAY AT BEDTIME
     Dates: start: 20190626, end: 20190801
  10. MYORISAN [Suspect]
     Active Substance: ISOTRETINOIN
     Dosage: 40 MG
     Dates: start: 20190802, end: 20190807
  11. VITAMIN D [Concomitant]
     Active Substance: VITAMIN D NOS
  12. TRINTELLIX [Concomitant]
     Active Substance: VORTIOXETINE HYDROBROMIDE

REACTIONS (5)
  - Attention deficit/hyperactivity disorder [Recovering/Resolving]
  - Depression [Recovering/Resolving]
  - Anxiety [Recovering/Resolving]
  - Bipolar disorder [Recovering/Resolving]
  - Off label use [Recovered/Resolved]

NARRATIVE: CASE EVENT DATE: 2019
